FAERS Safety Report 15168782 (Version 2)
Quarter: 2018Q3

REPORT INFORMATION
  Report Type: Report from Study
  Country: None (occurrence: ES)
  Receive Date: 20180720
  Receipt Date: 20180810
  Transmission Date: 20181010
  Serious: Yes (Death, Life-Threatening, Other)
  Sender: FDA-Public Use
  Company Number: ES-ABBVIE-17K-144-2201733-00

PATIENT
  Age: 73 Year
  Sex: Female

DRUGS (3)
  1. QUETIAPINE. [Concomitant]
     Active Substance: QUETIAPINE
     Indication: PRODUCT USED FOR UNKNOWN INDICATION
     Route: 065
  2. DUODOPA [Suspect]
     Active Substance: CARBIDOPA\LEVODOPA
     Indication: PARKINSON^S DISEASE
     Route: 050
     Dates: start: 20150731
  3. DUODOPA [Suspect]
     Active Substance: CARBIDOPA\LEVODOPA
     Dosage: DOSE WAS DECREASED BY  0.1ML
     Route: 050

REACTIONS (15)
  - Cerebrovascular accident [Recovered/Resolved with Sequelae]
  - General physical health deterioration [Unknown]
  - Cognitive disorder [Not Recovered/Not Resolved]
  - Stoma site erythema [Recovered/Resolved]
  - Cognitive disorder [Not Recovered/Not Resolved]
  - Catheter site discolouration [Recovered/Resolved]
  - Weight decreased [Not Recovered/Not Resolved]
  - Granuloma [Recovered/Resolved]
  - Stoma site discharge [Recovered/Resolved]
  - Cerebrovascular accident [Fatal]
  - Cardio-respiratory arrest [Recovered/Resolved]
  - Feeling abnormal [Not Recovered/Not Resolved]
  - Hallucination [Not Recovered/Not Resolved]
  - Parkinsonism [Unknown]
  - Stoma site erythema [Recovered/Resolved]

NARRATIVE: CASE EVENT DATE: 201711
